FAERS Safety Report 11885983 (Version 1)
Quarter: 2016Q1

REPORT INFORMATION
  Report Type: Spontaneous
  Country: GB (occurrence: GB)
  Receive Date: 20160104
  Receipt Date: 20160104
  Transmission Date: 20160526
  Serious: Yes (Other)
  Sender: FDA-Public Use
  Company Number: PHHY2015GB169651

PATIENT
  Age: 63 Year
  Sex: Female

DRUGS (12)
  1. PARACETAMOL [Suspect]
     Active Substance: ACETAMINOPHEN
     Indication: PRODUCT USED FOR UNKNOWN INDICATION
     Route: 065
  2. VITAMIIN C [Concomitant]
     Active Substance: ASCORBIC ACID
     Indication: PRODUCT USED FOR UNKNOWN INDICATION
     Dosage: 500 MG, UNK
     Route: 065
  3. IRON [Concomitant]
     Active Substance: IRON
     Indication: PRODUCT USED FOR UNKNOWN INDICATION
     Dosage: 25 UG, BID
     Route: 065
  4. LIOTHYRONINE SODIUM,SODIUM SALT [Suspect]
     Active Substance: LIOTHYRONINE SODIUM
     Indication: HYPOTHYROIDISM
     Dosage: UNK
     Route: 065
  5. LIOTHYRONINE SODIUM,SODIUM SALT [Suspect]
     Active Substance: LIOTHYRONINE SODIUM
     Dosage: 1 DF, UNK
     Dates: start: 2002
  6. LEVOTHYROXINE. [Concomitant]
     Active Substance: LEVOTHYROXINE
     Indication: HYPOTHYROIDISM
     Dosage: 100 UG, UNK
     Route: 065
     Dates: start: 2002
  7. VITAMIN B12 [Concomitant]
     Active Substance: CYANOCOBALAMIN
     Indication: PRODUCT USED FOR UNKNOWN INDICATION
     Dosage: 500 UG, UNK
     Route: 065
  8. ERGOCALCIFEROL. [Concomitant]
     Active Substance: ERGOCALCIFEROL
     Dates: start: 2011
  9. LEVOTHYROXINE. [Concomitant]
     Active Substance: LEVOTHYROXINE
  10. VITAMIN B12 [Concomitant]
     Active Substance: CYANOCOBALAMIN
     Dates: start: 2011
  11. ERGOCALCIFEROL. [Concomitant]
     Active Substance: ERGOCALCIFEROL
     Indication: VITAMIN D DEFICIENCY
     Dosage: 800 IU, UNK
     Route: 065
     Dates: start: 2011
  12. LIOTHYRONINE SODIUM,SODIUM SALT [Suspect]
     Active Substance: LIOTHYRONINE SODIUM
     Dosage: 1 DF, TID
     Dates: start: 2007

REACTIONS (24)
  - Fatigue [Unknown]
  - Thyroid function test abnormal [Unknown]
  - Hunger [Unknown]
  - Micturition urgency [Unknown]
  - Reaction to drug excipients [Unknown]
  - Drug hypersensitivity [Recovering/Resolving]
  - Drug ineffective [Unknown]
  - Arthralgia [Unknown]
  - Wheezing [Unknown]
  - Sleep disorder due to general medical condition, insomnia type [Unknown]
  - Eye pain [Recovering/Resolving]
  - Feeling abnormal [Recovered/Resolved]
  - Product quality issue [Unknown]
  - Weight increased [Unknown]
  - Vision blurred [Unknown]
  - Visual acuity reduced [Unknown]
  - Malaise [Not Recovered/Not Resolved]
  - Headache [Unknown]
  - Dyspnoea [Unknown]
  - Middle insomnia [Unknown]
  - Initial insomnia [Unknown]
  - Disturbance in attention [Unknown]
  - Memory impairment [Unknown]
  - Dry eye [Recovering/Resolving]
